FAERS Safety Report 4499328-9 (Version None)
Quarter: 2004Q4

REPORT INFORMATION
  Report Type: 
  Country: None (occurrence: None)
  Receive Date: 20040928
  Receipt Date: 20040811
  Transmission Date: 20050328
  Serious: No
  Sender: FDA-Public Use
  Company Number: 04P-163-0270148-00

PATIENT
  Age: 67 Year
  Sex: Male
  Weight: 77.1115 kg

DRUGS (9)
  1. HUMIRA [Suspect]
     Indication: RHEUMATOID ARTHRITIS
     Dosage: 40, 1 IN 2 WK, SUBCUTANEOUS
     Route: 058
     Dates: start: 20040601
  2. METHOTREXATE [Concomitant]
  3. FOLIC ACID [Concomitant]
  4. COLCHICINE [Concomitant]
  5. HYDROXYCLONICON [Concomitant]
  6. RISEDRONATE SODIUM [Concomitant]
  7. PREDNISONE [Concomitant]
  8. CALCIUM [Concomitant]
  9. ESOMEPRAZOLE [Concomitant]

REACTIONS (2)
  - ARTHRITIS [None]
  - FATIGUE [None]
